FAERS Safety Report 6948078-5 (Version None)
Quarter: 2010Q3

REPORT INFORMATION
  Report Type: 
  Country: None (occurrence: None)
  Receive Date: 20100828
  Receipt Date: 20091014
  Transmission Date: 20110219
  Serious: No
  Sender: FDA-Public Use
  Company Number: US-ABBOTT-09P-163-0603619-00

PATIENT
  Age: 40 Year
  Sex: Male
  Weight: 93.07 kg

DRUGS (5)
  1. NIASPAN [Suspect]
     Indication: HIGH DENSITY LIPOPROTEIN DECREASED
     Dates: start: 20090601, end: 20091013
  2. NIASPAN [Suspect]
     Indication: LOW DENSITY LIPOPROTEIN INCREASED
  3. NIASPAN [Suspect]
     Indication: BLOOD TRIGLYCERIDES
  4. CYMBALTA [Concomitant]
     Indication: PRODUCT USED FOR UNKNOWN INDICATION
     Dates: start: 20081201
  5. CELEBREX [Concomitant]
     Indication: BACK PAIN
     Dates: start: 20090501

REACTIONS (3)
  - ARTHRALGIA [None]
  - MYALGIA [None]
  - PARAESTHESIA [None]
